FAERS Safety Report 5397910-8 (Version None)
Quarter: 2007Q3

REPORT INFORMATION
  Report Type: 
  Country: None (occurrence: None)
  Receive Date: 20070724
  Receipt Date: 20070717
  Transmission Date: 20080115
  Serious: Yes (Other)
  Sender: FDA-Public Use
  Company Number: 2007BI006622

PATIENT
  Age: 64 Year
  Sex: Male
  Weight: 90.6287 kg

DRUGS (7)
  1. NATALIZUMAB [Suspect]
     Indication: MULTIPLE SCLEROSIS
     Dosage: 300 MG; QM; IV
     Route: 042
     Dates: start: 20070110, end: 20070220
  2. WELLBUTRIN XL [Concomitant]
  3. ARICEPT [Concomitant]
  4. NAMENDA [Concomitant]
  5. CRESTOR [Concomitant]
  6. SINGULAIR [Concomitant]
  7. ALLEGRA D 24 HOUR [Concomitant]

REACTIONS (1)
  - NON-HODGKIN'S LYMPHOMA STAGE III [None]
